FAERS Safety Report 6299953-9 (Version None)
Quarter: 2009Q3

REPORT INFORMATION
  Report Type: 
  Country: None (occurrence: None)
  Receive Date: 20090806
  Receipt Date: 20090728
  Transmission Date: 20100115
  Serious: Yes (Other)
  Sender: FDA-Public Use
  Company Number: JP-WYE-H10456409

PATIENT

DRUGS (2)
  1. ANCARON [Suspect]
     Dosage: DOSE AND FREQUENCY NOT SPECIFIED
     Route: 048
  2. PENTAZOCINE [Suspect]
     Dosage: DOSE AND FREQUENCY NOT SPECIFED
     Route: 065

REACTIONS (1)
  - SHOCK [None]
